FAERS Safety Report 5760072-9 (Version None)
Quarter: 2008Q2

REPORT INFORMATION
  Report Type: 
  Country: None (occurrence: None)
  Receive Date: 20080605
  Receipt Date: 20080605
  Transmission Date: 20081010
  Serious: Yes (Other)
  Sender: FDA-Public Use
  Company Number: FR-WYE-G01573208

PATIENT
  Age: 25 Year
  Sex: Female

DRUGS (3)
  1. TORISEL [Suspect]
     Indication: RENAL CANCER METASTATIC
     Dosage: UNKNOWN
     Route: 042
     Dates: start: 20080522, end: 20080522
  2. ROACCUTANE [Concomitant]
     Dosage: UNKNOWN
  3. POLARAMINE [Concomitant]
     Indication: PREMEDICATION
     Dosage: 1 AMPULE OF 5 MG, 30 MINUTES BEFORE TORISEL INFUSION
     Route: 042
     Dates: start: 20080522, end: 20080522

REACTIONS (3)
  - ANAPHYLACTIC SHOCK [None]
  - BACK PAIN [None]
  - SENSE OF OPPRESSION [None]
